FAERS Safety Report 9201471 (Version 3)
Quarter: 2013Q2

REPORT INFORMATION
  Report Type: Spontaneous
  Country: US (occurrence: US)
  Receive Date: 20130401
  Receipt Date: 20130517
  Transmission Date: 20140414
  Serious: No
  Sender: FDA-Public Use
  Company Number: US-JNJFOC-20130216645

PATIENT
  Age: 56 Year
  Sex: Male

DRUGS (7)
  1. DURAGESIC [Suspect]
     Indication: PAIN
     Route: 062
     Dates: start: 20130225, end: 20130225
  2. CLONAZEPAM [Concomitant]
     Indication: ANXIETY
     Route: 065
     Dates: start: 20130221
  3. CLONAZEPAM [Concomitant]
     Indication: NAUSEA
     Route: 065
     Dates: start: 20130221
  4. OMEPRAZOLE [Concomitant]
     Indication: GASTRITIS
     Route: 065
     Dates: start: 20130221
  5. PROMETHAZINE [Concomitant]
     Dosage: ONCE IN SIX HOURS AS NECESSARY
     Route: 065
     Dates: start: 20130208
  6. CITALOPRAM [Concomitant]
     Indication: DEPRESSION
     Route: 065
     Dates: start: 201205
  7. SIMVASTATIN [Concomitant]
     Indication: HYPERCHOLESTEROLAEMIA
     Dosage: ONCE IN THE EVENING
     Route: 065
     Dates: start: 201103

REACTIONS (2)
  - Vomiting [Recovered/Resolved]
  - Nausea [Unknown]
